FAERS Safety Report 19794147 (Version 2)
Quarter: 2021Q3

REPORT INFORMATION
  Report Type: Report from Study
  Country: US (occurrence: US)
  Receive Date: 20210906
  Receipt Date: 20210920
  Transmission Date: 20211014
  Serious: Yes (Hospitalization, Other)
  Sender: FDA-Public Use
  Company Number: US-SA-2021SA256041

PATIENT
  Age: 55 Year
  Sex: Male

DRUGS (2)
  1. TERIFLUNOMIDE. [Suspect]
     Active Substance: TERIFLUNOMIDE
     Dosage: 0.5 DF (HALF OF PILL), QD
     Route: 048
     Dates: start: 20210627, end: 20210706
  2. TERIFLUNOMIDE. [Suspect]
     Active Substance: TERIFLUNOMIDE
     Indication: MULTIPLE SCLEROSIS
     Dosage: 14 MG, QD
     Route: 048
     Dates: start: 20210601, end: 202106

REACTIONS (11)
  - Cerebrovascular accident [Unknown]
  - Suspected COVID-19 [Unknown]
  - Dizziness [Unknown]
  - Wrong technique in product usage process [Unknown]
  - Contusion [Unknown]
  - Cerebrovascular accident [Unknown]
  - Vomiting [Unknown]
  - Retching [Unknown]
  - Illness [Unknown]
  - Headache [Unknown]
  - Condition aggravated [Unknown]

NARRATIVE: CASE EVENT DATE: 2021
